FAERS Safety Report 23115302 (Version 5)
Quarter: 2023Q4

REPORT INFORMATION
  Report Type: Report from Study
  Country: FR (occurrence: FR)
  Receive Date: 20231027
  Receipt Date: 20231207
  Transmission Date: 20240109
  Serious: Yes (Hospitalization)
  Sender: FDA-Public Use
  Company Number: FR-JNJFOC-20231044850

PATIENT
  Age: 74 Year
  Sex: Female
  Weight: 66 kg

DRUGS (23)
  1. AMIVANTAMAB [Suspect]
     Active Substance: AMIVANTAMAB
     Indication: Non-small cell lung cancer metastatic
     Route: 042
     Dates: start: 20220131, end: 20231011
  2. BETAMETHASONE [Concomitant]
     Active Substance: BETAMETHASONE\BETAMETHASONE DIPROPIONATE
     Indication: Prophylaxis
     Dosage: 1
     Route: 061
     Dates: start: 20220131
  3. MONTMORILLONITE [Concomitant]
     Active Substance: MONTMORILLONITE
     Indication: Prophylaxis
     Route: 048
     Dates: start: 20220131
  4. GLYCERIN\MINERAL OIL\PETROLATUM [Concomitant]
     Active Substance: GLYCERIN\MINERAL OIL\PETROLATUM
     Indication: Prophylaxis
     Dosage: 1
     Route: 061
     Dates: start: 20220131
  5. LOPERAMIDE HYDROCHLORIDE [Concomitant]
     Active Substance: LOPERAMIDE HYDROCHLORIDE
     Indication: Prophylaxis
     Route: 048
     Dates: start: 20220131
  6. DELICAL BOISSON FRUITEE [Concomitant]
     Indication: Decreased appetite
     Dosage: 1
     Route: 048
     Dates: start: 20220207
  7. ECONAZOLE NITRATE [Concomitant]
     Active Substance: ECONAZOLE NITRATE
     Indication: Fungal infection
     Dosage: 1
     Route: 061
     Dates: start: 20220221
  8. MOUTHWASHGUM [Concomitant]
     Indication: Mucosal inflammation
     Route: 060
     Dates: start: 20220307
  9. PARAFFIN [Concomitant]
     Active Substance: PARAFFIN
     Indication: Dry skin
     Dosage: 1
     Route: 061
     Dates: start: 20220307
  10. MAGNESIUM CARBONATE [Concomitant]
     Active Substance: MAGNESIUM CARBONATE
     Indication: Anxiety
     Route: 048
     Dates: start: 20230316
  11. BARIEDERM [Concomitant]
     Indication: Onychoclasis
     Route: 062
     Dates: start: 20230524
  12. BENZOYL PEROXIDE [Concomitant]
     Active Substance: BENZOYL PEROXIDE
     Indication: Pustule
     Route: 062
     Dates: start: 20230524
  13. DOXYCYCLINE [Concomitant]
     Active Substance: DOXYCYCLINE
     Indication: Pustule
     Route: 048
     Dates: start: 20230524
  14. DOXYCYCLINE [Concomitant]
     Active Substance: DOXYCYCLINE
     Indication: Folliculitis
  15. FUSIDIC ACID [Concomitant]
     Active Substance: FUSIDIC ACID
     Indication: Pustule
     Route: 062
     Dates: start: 20230524
  16. BISOPROLOL [Concomitant]
     Active Substance: BISOPROLOL\BISOPROLOL FUMARATE
     Indication: Hypertension
     Route: 048
     Dates: start: 20230711
  17. DOXYCYCLINE [Concomitant]
     Active Substance: DOXYCYCLINE
     Indication: Dermatitis acneiform
     Route: 048
     Dates: start: 20230830
  18. VALSARTAN [Concomitant]
     Active Substance: VALSARTAN
     Indication: Hypertension
     Route: 048
     Dates: start: 20230908
  19. ASPIRIN [Concomitant]
     Active Substance: ASPIRIN
     Indication: Diabetes mellitus
     Route: 048
  20. CHOLECALCIFEROL [Concomitant]
     Active Substance: CHOLECALCIFEROL
     Indication: Prophylaxis
     Route: 048
  21. FENOFIBRATE [Concomitant]
     Active Substance: FENOFIBRATE
     Indication: Diabetes mellitus
     Route: 048
  22. FOSFOMYCIN [Concomitant]
     Active Substance: FOSFOMYCIN
     Indication: Prophylaxis
     Route: 048
  23. METFORMIN [Concomitant]
     Active Substance: METFORMIN HYDROCHLORIDE
     Indication: Diabetes mellitus
     Route: 048
     Dates: start: 20230601

REACTIONS (1)
  - Retinal detachment [Recovering/Resolving]

NARRATIVE: CASE EVENT DATE: 20231017
